FAERS Safety Report 8220776-5 (Version None)
Quarter: 2012Q1

REPORT INFORMATION
  Report Type: 
  Country: None (occurrence: None)
  Receive Date: 20120320
  Receipt Date: 20120312
  Transmission Date: 20120608
  Serious: Yes (Hospitalization, Other)
  Sender: FDA-Public Use
  Company Number: LU-UCBSA-053248

PATIENT
  Sex: Male

DRUGS (2)
  1. KEPPRA [Suspect]
     Route: 048
  2. KEPPRA [Suspect]
     Indication: EPILEPSY
     Route: 048

REACTIONS (2)
  - EPILEPSY [None]
  - BLOOD CREATINE PHOSPHOKINASE INCREASED [None]
